FAERS Safety Report 16164333 (Version 4)
Quarter: 2019Q3

REPORT INFORMATION
  Report Type: Spontaneous
  Country: US (occurrence: US)
  Receive Date: 20190405
  Receipt Date: 20190717
  Transmission Date: 20191004
  Serious: No
  Sender: FDA-Public Use
  Company Number: US-MTPC-MTDA2019-0040981

PATIENT

DRUGS (3)
  1. RADICAVA [Suspect]
     Active Substance: EDARAVONE
     Indication: PRODUCT USED FOR UNKNOWN INDICATION
     Dosage: UNK, 17 DAYS OUT OF 4 WEEKS
     Route: 065
  2. RADICAVA [Suspect]
     Active Substance: EDARAVONE
     Dosage: 20 INFUSIONS PER MONTH
     Route: 065
     Dates: start: 201901
  3. RADICAVA [Suspect]
     Active Substance: EDARAVONE
     Dosage: UNK, 17/21 DAYS
     Route: 065

REACTIONS (3)
  - Off label use [Unknown]
  - Therapeutic response unexpected [Unknown]
  - Inappropriate schedule of product administration [Unknown]
